FAERS Safety Report 22354799 (Version 2)
Quarter: 2023Q2

REPORT INFORMATION
  Report Type: Report from Study
  Country: BR (occurrence: BR)
  Receive Date: 20230523
  Receipt Date: 20230526
  Transmission Date: 20230722
  Serious: Yes (Hospitalization, Other)
  Sender: FDA-Public Use
  Company Number: BR-CELLTRION INC.-2023BR010607

PATIENT

DRUGS (6)
  1. INFLIXIMAB [Suspect]
     Active Substance: INFLIXIMAB
     Indication: Colitis ulcerative
     Dosage: 6 AMPOULES EVERY 8 WEEKS
     Route: 042
     Dates: start: 20220718
  2. INFLIXIMAB [Suspect]
     Active Substance: INFLIXIMAB
     Dosage: UNK
     Dates: start: 20221118
  3. MESALAMINE [Concomitant]
     Active Substance: MESALAMINE
     Indication: Colitis ulcerative
     Dosage: 1 CAPSULE DAY VIA SUPOSITORIAL ROUTE; START DATE: 1 YEAR
  4. TRAZODONE [Concomitant]
     Active Substance: TRAZODONE HYDROCHLORIDE
     Indication: Anxiety
     Dosage: 1 CAPSULE DAY; START DATE: 4 YEARS
     Route: 048
  5. VALPROATE SODIUM [Concomitant]
     Active Substance: VALPROATE SODIUM
     Indication: Epilepsy
     Dosage: 1 CAPSULE DAY; START DATE: 7 MONTHS
     Route: 048
  6. DENOSUMAB [Concomitant]
     Active Substance: DENOSUMAB
     Dosage: 3 AMPOULES EVERY 2 MONTHS; START DATE: 1 MONTH
     Route: 048

REACTIONS (4)
  - Haematochezia [Not Recovered/Not Resolved]
  - Abdominal pain [Not Recovered/Not Resolved]
  - Colitis ulcerative [Not Recovered/Not Resolved]
  - Drug resistance [Unknown]

NARRATIVE: CASE EVENT DATE: 20230101
